FAERS Safety Report 16630862 (Version 1)
Quarter: 2019Q3

REPORT INFORMATION
  Report Type: Report from Study
  Country: FR (occurrence: FR)
  Receive Date: 20190725
  Receipt Date: 20190725
  Transmission Date: 20191004
  Serious: Yes (Hospitalization)
  Sender: FDA-Public Use
  Company Number: FR-PFIZER INC-2016366578

PATIENT
  Age: 59 Year
  Sex: Male
  Weight: 65 kg

DRUGS (9)
  1. NO SUBJECT DRUG [Suspect]
     Active Substance: UNSPECIFIED INGREDIENT
     Dosage: NO DOSE GIVEN
  2. STELARA [Suspect]
     Active Substance: USTEKINUMAB
     Dosage: 90 MG, CYCLIC EVERY 12 WEEKS
     Route: 058
     Dates: start: 20160708, end: 20190411
  3. STELARA [Suspect]
     Active Substance: USTEKINUMAB
     Dosage: 45 MG, CYCLIC EVERY 12 WEEKS
     Route: 058
     Dates: start: 20150212, end: 20160708
  4. METHOTREXATE SODIUM. [Suspect]
     Active Substance: METHOTREXATE SODIUM
     Indication: PSORIASIS
     Dosage: 30 MG, CYCLIC EVERY 7 WEEKS
     Route: 048
     Dates: end: 2013
  5. METHOTREXATE SODIUM. [Suspect]
     Active Substance: METHOTREXATE SODIUM
     Dosage: 10 MG, WEEKLY
     Route: 048
     Dates: start: 20160112, end: 20190201
  6. FOLIC ACID. [Concomitant]
     Active Substance: FOLIC ACID
     Dosage: 5 MG, WEEKLY
     Route: 048
     Dates: start: 20160112
  7. ACITRETIN. [Concomitant]
     Active Substance: ACITRETIN
     Dosage: UNK
  8. RILUZOLE. [Concomitant]
     Active Substance: RILUZOLE
     Dosage: UNK
     Dates: start: 20190528
  9. STELARA [Suspect]
     Active Substance: USTEKINUMAB
     Indication: PSORIASIS
     Dosage: 45 MG, CYCLIC EVERY 4 WEEKS
     Route: 058
     Dates: start: 20150112, end: 20150212

REACTIONS (2)
  - Drug ineffective [Not Recovered/Not Resolved]
  - Amyotrophic lateral sclerosis [Not Recovered/Not Resolved]

NARRATIVE: CASE EVENT DATE: 20190509
